FAERS Safety Report 11467963 (Version 1)
Quarter: 2015Q3

REPORT INFORMATION
  Report Type: Spontaneous
  Country: JP (occurrence: JP)
  Receive Date: 20150908
  Receipt Date: 20150908
  Transmission Date: 20151125
  Serious: Yes (Life-Threatening)
  Sender: FDA-Public Use
  Company Number: JP-TEVA-551677ISR

PATIENT
  Age: 69 Year
  Sex: Male

DRUGS (3)
  1. (TYK)PAMILICON TABLET 2.5MG, TAB, 2.5MG [Suspect]
     Active Substance: GLYBURIDE
     Indication: DIABETES MELLITUS
     Dosage: 10 MILLIGRAM DAILY;
     Route: 048
     Dates: start: 20110125, end: 20150302
  2. PIOGLITAZONE. [Interacting]
     Active Substance: PIOGLITAZONE
     Indication: DIABETES MELLITUS
     Dosage: 15 MILLIGRAM DAILY;
     Route: 048
     Dates: start: 20141117, end: 20150302
  3. AMLODIPINE [Concomitant]
     Active Substance: AMLODIPINE BESYLATE
     Indication: HYPERTENSION
     Dosage: 2.5 MILLIGRAM DAILY;
     Route: 048
     Dates: start: 20100125

REACTIONS (3)
  - Hypoglycaemia [Recovered/Resolved]
  - Drug interaction [Unknown]
  - Depressed level of consciousness [Unknown]

NARRATIVE: CASE EVENT DATE: 20150302
